FAERS Safety Report 17063392 (Version 1)
Quarter: 2019Q4

REPORT INFORMATION
  Report Type: Spontaneous
  Country: US (occurrence: US)
  Receive Date: 20191023
  Receipt Date: 20191023
  Transmission Date: 20200122
  Serious: Yes (Disabling)
  Sender: FDA-Public Use
  Company Number: None

PATIENT
  Age: 83 Year
  Sex: Male
  Weight: 83.01 kg

DRUGS (11)
  1. XARELTO [Suspect]
     Active Substance: RIVAROXABAN
     Indication: ATRIAL FIBRILLATION
     Dosage: ?          QUANTITY:1 DF DOSAGE FORM;?
     Route: 048
     Dates: start: 20180924, end: 20190801
  2. CLARITIN [Concomitant]
     Active Substance: LORATADINE
  3. ASPIRIN. [Concomitant]
     Active Substance: ASPIRIN
  4. TYLENOL PM EX. STR. [Concomitant]
  5. FUROSEMIDE. [Concomitant]
     Active Substance: FUROSEMIDE
  6. TAMSULOSIN [Concomitant]
     Active Substance: TAMSULOSIN
  7. PRESERVISION AREDS [Concomitant]
     Active Substance: MINERALS\VITAMINS
  8. ATENOLOL. [Concomitant]
     Active Substance: ATENOLOL
  9. POTTASSIUM CHL [Concomitant]
  10. XARELTO [Suspect]
     Active Substance: RIVAROXABAN
     Indication: CARDIAC FAILURE CONGESTIVE
     Dosage: ?          QUANTITY:1 DF DOSAGE FORM;?
     Route: 048
     Dates: start: 20180924, end: 20190801
  11. DILTIAZEM HCL [Concomitant]
     Active Substance: DILTIAZEM HYDROCHLORIDE

REACTIONS (1)
  - Dyspnoea exertional [None]

NARRATIVE: CASE EVENT DATE: 20180924
